FAERS Safety Report 8580395-8 (Version None)
Quarter: 2012Q2

REPORT INFORMATION
  Report Type: 
  Country: None (occurrence: None)
  Receive Date: 20120423
  Receipt Date: 20091214
  Transmission Date: 20120825
  Serious: Yes (Other)
  Sender: FDA-Public Use
  Company Number: PHHY2009US55542

PATIENT

DRUGS (1)
  1. EXJADE [Suspect]

REACTIONS (1)
  - GASTROINTESTINAL HAEMORRHAGE [None]
